FAERS Safety Report 6955295-7 (Version None)
Quarter: 2010Q3

REPORT INFORMATION
  Report Type: 
  Country: None (occurrence: None)
  Receive Date: 20100830
  Receipt Date: 20100818
  Transmission Date: 20110219
  Serious: Yes (Other)
  Sender: FDA-Public Use
  Company Number: PHHY2010US54868

PATIENT
  Sex: Female

DRUGS (7)
  1. FANAPT [Suspect]
     Dosage: 3 MG, BID
     Route: 048
     Dates: start: 20100727, end: 20100802
  2. LUNESTA [Concomitant]
  3. LORAZEPAM [Concomitant]
     Dosage: UNK
  4. LIOTHYRONINE SODIUM [Concomitant]
     Dosage: UNK
  5. GABAPENTIN [Concomitant]
     Dosage: UNK
  6. ALLEGRA [Concomitant]
     Dosage: UNK
  7. NEFAZODONE HCL [Concomitant]

REACTIONS (6)
  - ANXIETY [None]
  - DYSPNOEA [None]
  - INSOMNIA [None]
  - OEDEMA PERIPHERAL [None]
  - ORTHOSTATIC HYPOTENSION [None]
  - PALPITATIONS [None]
